FAERS Safety Report 7153360-5 (Version None)
Quarter: 2010Q4

REPORT INFORMATION
  Report Type: 
  Country: None (occurrence: None)
  Receive Date: 20101209
  Receipt Date: 20101209
  Transmission Date: 20110411
  Serious: No
  Sender: FDA-Public Use
  Company Number: None

PATIENT
  Age: 69 Year
  Sex: Female
  Weight: 72.5755 kg

DRUGS (1)
  1. RECLAST [Suspect]
     Indication: BONE DENSITY ABNORMAL
     Dosage: INFUSION ONCE A YEAR
     Dates: start: 20100910, end: 20100910

REACTIONS (5)
  - ABASIA [None]
  - BONE PAIN [None]
  - PAIN [None]
  - PYREXIA [None]
  - SCIATICA [None]
